FAERS Safety Report 6129609-4 (Version None)
Quarter: 2009Q1

REPORT INFORMATION
  Report Type: 
  Country: None (occurrence: None)
  Receive Date: 20090324
  Receipt Date: 20090318
  Transmission Date: 20090719
  Serious: Yes (Other)
  Sender: FDA-Public Use
  Company Number: PHHY2009DE10235

PATIENT
  Sex: Female

DRUGS (4)
  1. RASILEZ [Suspect]
     Indication: HYPERTENSION
     Dosage: 150 MG/DAY
     Dates: start: 20090303, end: 20090311
  2. RASILEZ [Suspect]
     Dosage: 300 MG/DAY
     Dates: start: 20090312
  3. METOPROLOL TARTRATE [Concomitant]
     Indication: HYPERTENSION
     Dosage: 1 DF, BID
     Dates: start: 20090201
  4. AMLODIN [Concomitant]
     Indication: HYPERTENSION
     Dosage: 1 DF, BID
     Dates: start: 20090201

REACTIONS (3)
  - HAEMOGLOBIN DECREASED [None]
  - HYPOCHROMIC ANAEMIA [None]
  - PLATELET COUNT INCREASED [None]
